FAERS Safety Report 6671792-6 (Version None)
Quarter: 2010Q2

REPORT INFORMATION
  Report Type: 
  Country: None (occurrence: None)
  Receive Date: 20100406
  Receipt Date: 20100406
  Transmission Date: 20101027
  Serious: No
  Sender: FDA-Public Use
  Company Number: None

PATIENT
  Age: 60 Year
  Sex: Female
  Weight: 83.9154 kg

DRUGS (1)
  1. OMEPRAZOLE [Suspect]
     Indication: OESOPHAGEAL ULCER
     Dosage: 20MG DAILY PO
     Route: 048
     Dates: start: 20100302, end: 20100330

REACTIONS (10)
  - ANXIETY [None]
  - ASTHENIA [None]
  - BLOOD PRESSURE INCREASED [None]
  - CONDITION AGGRAVATED [None]
  - DEPRESSION [None]
  - FATIGUE [None]
  - INSOMNIA [None]
  - PALPITATIONS [None]
  - SENSATION OF BLOOD FLOW [None]
  - SUICIDAL IDEATION [None]
